FAERS Safety Report 9254564 (Version 1)
Quarter: 2013Q2

REPORT INFORMATION
  Report Type: Spontaneous
  Country: US (occurrence: None)
  Receive Date: 20130422
  Receipt Date: 20130422
  Transmission Date: 20140414
  Serious: Yes (Hospitalization)
  Sender: FDA-Public Use
  Company Number: None

PATIENT
  Age: 43 Year
  Sex: Male
  Weight: 58.97 kg

DRUGS (1)
  1. IBUPROFEN 800 MG [Suspect]

REACTIONS (1)
  - Gastrointestinal haemorrhage [None]
